FAERS Safety Report 12204453 (Version 1)
Quarter: 2016Q1

REPORT INFORMATION
  Report Type: Spontaneous
  Country: US (occurrence: None)
  Receive Date: 20160322
  Receipt Date: 20160322
  Transmission Date: 20160526
  Serious: Yes (Hospitalization)
  Sender: FDA-Public Use
  Company Number: None

PATIENT
  Age: 66 Year
  Sex: Male
  Weight: 95.7 kg

DRUGS (2)
  1. SUNITINIB MALATE (SU011248 L-MALATE) [Suspect]
     Active Substance: SUNITINIB MALATE
     Dates: end: 20160317
  2. GEMCITABINE HYDROCHLORIDE. [Suspect]
     Active Substance: GEMCITABINE HYDROCHLORIDE
     Dates: end: 20160311

REACTIONS (5)
  - Dehydration [None]
  - Thrombocytopenia [None]
  - Fall [None]
  - Anaemia [None]
  - Muscular weakness [None]

NARRATIVE: CASE EVENT DATE: 20160318
